FAERS Safety Report 10601799 (Version 2)
Quarter: 2014Q4

REPORT INFORMATION
  Report Type: Report from Study
  Country: JP (occurrence: None)
  Receive Date: 20141120
  Receipt Date: 20141215
  Transmission Date: 20150529
  Serious: Yes (Hospitalization, Other)
  Sender: FDA-Public Use
  Company Number: JP-017743

PATIENT
  Age: 79 Year
  Sex: Male
  Weight: 62 kg

DRUGS (9)
  1. DENOSUMAB [Concomitant]
     Active Substance: DENOSUMAB
  2. DEGARELIX (DEGARELIX) (240 MG, 480 MG) [Suspect]
     Active Substance: DEGARELIX
     Indication: PROSTATE CANCER
     Dosage: 240 MG 1X SUBCUTANEOUS
     Route: 058
     Dates: start: 20140409, end: 20140409
  3. JUVELA N [Concomitant]
     Active Substance: TOCOPHERYL NICOTINATE, D-.ALPHA.
  4. GASTROM [Concomitant]
     Active Substance: ECABET
  5. URSO [Concomitant]
     Active Substance: URSODIOL
  6. BRONUCK OPHTHALMIC SOLUTION 0.1% [Concomitant]
     Active Substance: BROMFENAC SODIUM
  7. AMLODIPINE [Concomitant]
     Active Substance: AMLODIPINE BESYLATE
  8. SANCOBA [Concomitant]
     Active Substance: CYANOCOBALAMIN
  9. HARNAL [Concomitant]
     Active Substance: TAMSULOSIN HYDROCHLORIDE

REACTIONS (10)
  - Gallbladder cancer [None]
  - Metastases to lymph nodes [None]
  - Acute abdomen [None]
  - Abdominal distension [None]
  - Pyrexia [None]
  - Gallbladder disorder [None]
  - Vomiting [None]
  - Hepatic neoplasm [None]
  - Cholangitis [None]
  - Metastases to liver [None]

NARRATIVE: CASE EVENT DATE: 20141030
